FAERS Safety Report 4935099-7 (Version None)
Quarter: 2006Q1

REPORT INFORMATION
  Report Type: 
  Country: None (occurrence: None)
  Receive Date: 20060302
  Receipt Date: 20060217
  Transmission Date: 20060701
  Serious: Yes (Other)
  Sender: FDA-Public Use
  Company Number: 2006025831

PATIENT
  Age: 47 Year
  Sex: Male
  Weight: 113.3993 kg

DRUGS (22)
  1. VIAGRA [Suspect]
     Indication: ERECTILE DYSFUNCTION
     Dosage: 100 MG (100 MG, 1 IN 1 AS NECESSARY), ORAL
     Route: 048
  2. ADVICOR [Suspect]
     Indication: BLOOD CHOLESTEROL INCREASED
     Dates: end: 20060101
  3. ADVICOR [Suspect]
     Indication: BLOOD TRIGLYCERIDES INCREASED
     Dates: end: 20060101
  4. OXYCONTIN [Concomitant]
  5. OXYCODONE (OXYCODONE) [Concomitant]
  6. NEURONTIN [Concomitant]
  7. FLEXERIL (CYCLOBENZAPRNE HYDROCHLORIDE) [Concomitant]
  8. AMBIEN [Concomitant]
  9. DETROL LA [Concomitant]
  10. QUININE SULFATE [Concomitant]
  11. CEPHADIN (CEFRADINE) [Concomitant]
  12. LORAZEPAM [Concomitant]
  13. BUPROPION HCL [Concomitant]
  14. FLUCONAZOLE [Concomitant]
  15. NORVASC [Concomitant]
  16. AVELOX [Concomitant]
  17. SULFAMETHOXAZOLE + TRIMETHOPRIM [Concomitant]
  18. SENOKOT [Concomitant]
  19. COLACE (DOCUSATE SODIUM) [Concomitant]
  20. MAGNESIUM (MAGNESIUM) [Concomitant]
  21. CALCIUM (CALCIUM) [Concomitant]
  22. DEXAMETHASONE [Concomitant]

REACTIONS (9)
  - BLOOD CHOLESTEROL INCREASED [None]
  - BLOOD TRIGLYCERIDES INCREASED [None]
  - CARPAL TUNNEL DECOMPRESSION [None]
  - DRUG EFFECT DECREASED [None]
  - NERVE COMPRESSION [None]
  - OSTEOARTHRITIS [None]
  - PAIN [None]
  - SURGERY [None]
  - T-CELL LYMPHOMA [None]
